FAERS Safety Report 25062255 (Version 1)
Quarter: 2025Q1

REPORT INFORMATION
  Report Type: Spontaneous
  Country: US (occurrence: US)
  Receive Date: 20250311
  Receipt Date: 20250311
  Transmission Date: 20250409
  Serious: No
  Sender: ROCHE
  Company Number: US-CHEPLA-2025002932

PATIENT
  Age: 53 Year
  Sex: Male

DRUGS (4)
  1. VALGANCICLOVIR [Suspect]
     Active Substance: VALGANCICLOVIR
     Indication: Cytomegalovirus oesophagitis
     Dosage: TWICE DAILY
     Route: 065
  2. GANCICLOVIR [Concomitant]
     Active Substance: GANCICLOVIR
     Indication: Cytomegalovirus oesophagitis
     Route: 065
  3. PANTOPRAZOLE [Concomitant]
     Active Substance: PANTOPRAZOLE
     Indication: Cytomegalovirus oesophagitis
     Route: 048
  4. EPINEPHRINE [Concomitant]
     Active Substance: EPINEPHRINE
     Indication: Upper gastrointestinal haemorrhage
     Route: 065

REACTIONS (2)
  - Off label use [Unknown]
  - No adverse event [Unknown]
